FAERS Safety Report 19383903 (Version 1)
Quarter: 2021Q2

REPORT INFORMATION
  Report Type: Spontaneous
  Country: US (occurrence: US)
  Receive Date: 20210608
  Receipt Date: 20210608
  Transmission Date: 20210717
  Serious: Yes (Hospitalization, Other)
  Sender: FDA-Public Use
  Company Number: US-SA-2021SA189128

PATIENT
  Age: 67 Year
  Sex: Male

DRUGS (2)
  1. DUPIXENT [Suspect]
     Active Substance: DUPILUMAB
     Indication: DERMATITIS ATOPIC
     Dosage: UNK
     Route: 058
     Dates: end: 202010
  2. DUPIXENT [Suspect]
     Active Substance: DUPILUMAB
     Dosage: UNK
     Route: 058

REACTIONS (7)
  - Heart valve operation [Unknown]
  - Rash [Unknown]
  - Skin haemorrhage [Unknown]
  - Therapeutic response decreased [Unknown]
  - Dry skin [Unknown]
  - Eczema [Unknown]
  - Cardiac valve rupture [Unknown]

NARRATIVE: CASE EVENT DATE: 202010
